FAERS Safety Report 13705293 (Version 1)
Quarter: 2017Q2

REPORT INFORMATION
  Report Type: Spontaneous
  Country: US (occurrence: US)
  Receive Date: 20170629
  Receipt Date: 20170629
  Transmission Date: 20170830
  Serious: No
  Sender: FDA-Public Use
  Company Number: None

PATIENT
  Age: 46 Year
  Sex: Female

DRUGS (1)
  1. KISQALI [Suspect]
     Active Substance: RIBOCICLIB

REACTIONS (6)
  - Dizziness [None]
  - Stomatitis [None]
  - Dysgeusia [None]
  - Decreased appetite [None]
  - Lip dry [None]
  - Vomiting [None]

NARRATIVE: CASE EVENT DATE: 20170518
